FAERS Safety Report 7376887-X (Version None)
Quarter: 2011Q1

REPORT INFORMATION
  Report Type: 
  Country: None (occurrence: None)
  Receive Date: 20110327
  Receipt Date: 20110316
  Transmission Date: 20110831
  Serious: Yes (Death)
  Sender: FDA-Public Use
  Company Number: PL-CELGENEUS-129-50794-10112329

PATIENT
  Sex: Male

DRUGS (4)
  1. ENCORTON [Concomitant]
     Indication: AUTOIMMUNE THROMBOCYTOPENIA
     Dosage: 90 MILLIGRAM
     Route: 065
  2. VIDAZA [Suspect]
     Indication: MYELODYSPLASTIC SYNDROME
     Dosage: 150 MILLIGRAM
     Route: 058
     Dates: start: 20091012, end: 20101005
  3. CYCLOSPORINE [Concomitant]
     Dosage: 50 MILLIGRAM
     Route: 065
  4. AMLOZEK [Concomitant]
     Indication: HYPERTENSION
     Route: 065

REACTIONS (2)
  - AGRANULOCYTOSIS [None]
  - SEPSIS [None]
